FAERS Safety Report 6156356-5 (Version None)
Quarter: 2009Q2

REPORT INFORMATION
  Report Type: 
  Country: None (occurrence: None)
  Receive Date: 20090415
  Receipt Date: 20090407
  Transmission Date: 20091009
  Serious: Yes (Other)
  Sender: FDA-Public Use
  Company Number: JP-GENENTECH-280761

PATIENT
  Sex: Male

DRUGS (6)
  1. RITUXIMAB [Suspect]
     Indication: NON-HODGKIN'S LYMPHOMA
     Dosage: 720 MG, UNK
     Route: 042
     Dates: start: 20071106
  2. ZYLORIC [Concomitant]
     Indication: DRUG USE FOR UNKNOWN INDICATION
     Dosage: 4 TABLET, QD
     Route: 048
     Dates: start: 20081025
  3. VEPESID [Concomitant]
     Indication: DRUG USE FOR UNKNOWN INDICATION
     Dosage: 76 MG, UNK
     Route: 042
     Dates: start: 20081126
  4. METHYLPREDNISOLONE SODIUM SUCCINATE [Concomitant]
     Indication: DRUG USE FOR UNKNOWN INDICATION
     Dosage: 910 MG, UNK
     Route: 042
     Dates: start: 20081126, end: 20081222
  5. RANDA [Concomitant]
     Indication: DRUG USE FOR UNKNOWN INDICATION
     Dosage: 48 MG, UNK
     Route: 042
     Dates: start: 20081126, end: 20081212
  6. CYTARABINE [Concomitant]
     Indication: DRUG USE FOR UNKNOWN INDICATION

REACTIONS (2)
  - HEPATITIS B [None]
  - LIVER DISORDER [None]
